FAERS Safety Report 8203425-1 (Version None)
Quarter: 2012Q1

REPORT INFORMATION
  Report Type: 
  Country: None (occurrence: None)
  Receive Date: 20120313
  Receipt Date: 20120305
  Transmission Date: 20120608
  Serious: Yes (Hospitalization)
  Sender: FDA-Public Use
  Company Number: IL-BRISTOL-MYERS SQUIBB COMPANY-16092488

PATIENT
  Age: 81 Year
  Sex: Male

DRUGS (15)
  1. GLIPIZIDE [Suspect]
     Indication: DIABETES MELLITUS
     Dates: start: 20110925
  2. AMLODIPINE [Concomitant]
     Dates: start: 20091103
  3. ENALAPRIL MALEATE [Concomitant]
  4. MERCAPTIZOL [Suspect]
     Dates: start: 20110825
  5. BLINDED: SAXAGLIPTIN [Suspect]
     Indication: TYPE 2 DIABETES MELLITUS
     Dosage: STOP DATE:20SEP2011. RESTART : 20DEC11
     Dates: start: 20101222
  6. MICROPIRIN [Concomitant]
     Dates: start: 20081211
  7. REPAGLINIDE [Suspect]
     Indication: TYPE 2 DIABETES MELLITUS
     Dosage: DRUG INTERRUPTED ON 22SEP2011 RESTART : 20DEC11
     Dates: start: 20110616
  8. ASPIRIN [Concomitant]
     Dosage: 1DF={100MG ON 22DEC10,22MAR11,05SEP11.
  9. FUROSEMIDE [Concomitant]
     Dates: start: 20110223
  10. GLUCOMIN [Concomitant]
     Dates: start: 20090315
  11. SIMVASTATIN [Concomitant]
     Dates: start: 20101227, end: 20110921
  12. PLACEBO [Suspect]
     Indication: TYPE 2 DIABETES MELLITUS
     Dosage: RESTART : 20DEC11
     Dates: start: 20101222
  13. PROSCAR [Suspect]
  14. REPAGLINIDE [Concomitant]
     Dates: start: 20110616, end: 20110921
  15. COENZYME Q10 [Concomitant]
     Dates: start: 20110821, end: 20110921

REACTIONS (4)
  - JAUNDICE [None]
  - HEPATIC FUNCTION ABNORMAL [None]
  - ANAEMIA [None]
  - TRANSFUSION REACTION [None]
